FAERS Safety Report 24129120 (Version 1)
Quarter: 2024Q3

REPORT INFORMATION
  Report Type: Spontaneous
  Country: CA (occurrence: CA)
  Receive Date: 20240723
  Receipt Date: 20240723
  Transmission Date: 20241017
  Serious: Yes (Hospitalization, Other)
  Sender: BRISTOL MYERS SQUIBB
  Company Number: CA-CELGENE-CAN-20210203338

PATIENT
  Age: 71 Year
  Sex: Male

DRUGS (26)
  1. ABRAXANE [Suspect]
     Active Substance: PACLITAXEL
     Indication: Pancreatic carcinoma
     Route: 042
  2. ABRAXANE [Suspect]
     Active Substance: PACLITAXEL
  3. TREMELIMUMAB [Concomitant]
     Active Substance: TREMELIMUMAB
     Indication: Pancreatic carcinoma
     Dosage: FREQUENCY TEXT: NOT PROVIDED
     Route: 042
  4. GEMCITABINE [Concomitant]
     Active Substance: GEMCITABINE
     Indication: Pancreatic carcinoma
     Route: 042
  5. DURVALUMAB [Concomitant]
     Active Substance: DURVALUMAB
     Indication: Pancreatic carcinoma
     Dosage: FREQUENCY TEXT: NOT PROVIDED
     Route: 042
  6. DEXAMETHASONE [Concomitant]
     Active Substance: DEXAMETHASONE
     Indication: Prophylaxis
     Dosage: FREQUENCY TEXT: NOT PROVIDED
  7. ENDOCET [Concomitant]
     Active Substance: ACETAMINOPHEN\OXYCODONE HYDROCHLORIDE
     Indication: Abdominal pain
     Dosage: FREQUENCY TEXT: NOT PROVIDED
     Route: 048
  8. ENDOCET [Concomitant]
     Active Substance: ACETAMINOPHEN\OXYCODONE HYDROCHLORIDE
  9. FENTANYL [Concomitant]
     Active Substance: FENTANYL\FENTANYL CITRATE
     Indication: Abdominal pain
     Route: 062
  10. LOPERAMIDE [Concomitant]
     Active Substance: LOPERAMIDE
     Indication: Diarrhoea
  11. POLYETHYLENE GLYCOL 3350 [Concomitant]
     Active Substance: POLYETHYLENE GLYCOL 3350
     Indication: Constipation
  12. METOCLOPRAMIDE [Concomitant]
     Active Substance: METOCLOPRAMIDE
     Indication: Nausea
  13. ONDANSETRON [Concomitant]
     Active Substance: ONDANSETRON
     Indication: Prophylaxis
  14. PANCREATIN [Concomitant]
     Active Substance: PANCRELIPASE
     Indication: Dyspepsia
  15. PREGABALIN [Concomitant]
     Active Substance: PREGABALIN
     Indication: Neuralgia
     Dosage: FREQUENCY TEXT: NOT PROVIDED
     Route: 048
  16. PREGABALIN [Concomitant]
     Active Substance: PREGABALIN
  17. RANITIDINE HYDROCHLORIDE [Concomitant]
     Active Substance: RANITIDINE HYDROCHLORIDE
     Indication: Dyspepsia
     Dosage: FREQUENCY TEXT: NOT PROVIDED
  18. SENNA LEAF [Concomitant]
     Active Substance: SENNA LEAF
     Indication: Constipation
     Dosage: FREQUENCY TEXT: NOT PROVIDED
     Route: 048
  19. TEMAZEPAM [Concomitant]
     Active Substance: TEMAZEPAM
     Indication: Insomnia
     Route: 048
  20. TEMAZEPAM [Concomitant]
     Active Substance: TEMAZEPAM
  21. ZANTAC [Concomitant]
     Active Substance: RANITIDINE HYDROCHLORIDE
     Indication: Dyspepsia
     Dosage: FREQUENCY TEXT: NOT PROVIDED
  22. DULOXETINE HYDROCHLORIDE [Concomitant]
     Active Substance: DULOXETINE HYDROCHLORIDE
     Indication: Depression
  23. LOPERAMIDE OXIDE [Concomitant]
     Active Substance: LOPERAMIDE OXIDE
     Indication: Diarrhoea
  24. ONDANSETRON HYDROCHLORIDE [Concomitant]
     Active Substance: ONDANSETRON HYDROCHLORIDE
     Indication: Prophylaxis
  25. PACLITAXEL [Concomitant]
     Active Substance: PACLITAXEL
     Indication: Pancreatic carcinoma
     Route: 042
  26. ALUMINIUM MAGNESIUM SILICATE;MAGALDRATE;MAGNESIUM OXIDE;RANITIDINE HYD [Concomitant]
     Indication: Dyspepsia

REACTIONS (2)
  - Gastrointestinal pain [Recovered/Resolved]
  - Colitis [Recovered/Resolved]
